FAERS Safety Report 21753589 (Version 1)
Quarter: 2022Q4

REPORT INFORMATION
  Report Type: Spontaneous
  Country: US (occurrence: None)
  Receive Date: 20221219
  Receipt Date: 20221219
  Transmission Date: 20230113
  Serious: Yes (Other)
  Sender: FDA-Public Use
  Company Number: None

PATIENT
  Age: 27 Year
  Sex: Male
  Weight: 67.5 kg

DRUGS (6)
  1. PAXLOVID [Suspect]
     Active Substance: NIRMATRELVIR\RITONAVIR
     Indication: COVID-19
     Dosage: FREQUENCY : TWICE A DAY;?
     Route: 048
     Dates: start: 20221216, end: 20221218
  2. Mens multi vitamin pill [Concomitant]
     Dates: start: 20221101, end: 20221216
  3. codliver oil [Concomitant]
     Dates: start: 20221201, end: 20221216
  4. LAVENDER [Concomitant]
     Active Substance: ALCOHOL
     Dates: start: 20221201, end: 20221216
  5. acanasia capsule [Concomitant]
     Dates: start: 20221201, end: 20221216
  6. oil of orgengo [Concomitant]
     Dates: start: 20221201, end: 20221216

REACTIONS (4)
  - Stomatitis [None]
  - Faeces discoloured [None]
  - Taste disorder [None]
  - Abdominal pain upper [None]

NARRATIVE: CASE EVENT DATE: 20221218
